FAERS Safety Report 14627521 (Version 1)
Quarter: 2018Q1

REPORT INFORMATION
  Report Type: Spontaneous
  Country: FR (occurrence: FR)
  Receive Date: 20180312
  Receipt Date: 20180312
  Transmission Date: 20180509
  Serious: Yes (Hospitalization)
  Sender: FDA-Public Use
  Company Number: FR-JNJFOC-20180308440

PATIENT
  Age: 19 Year
  Sex: Female
  Weight: 127 kg

DRUGS (13)
  1. CLIMASTON [Concomitant]
     Active Substance: ESTRADIOL\PROGESTERONE
     Dosage: 2 MG/10 MG.
     Route: 048
  2. METHYLPHENIDATE HYDROCHLORIDE. [Concomitant]
     Active Substance: METHYLPHENIDATE HYDROCHLORIDE
     Route: 048
  3. EPITOMAX [Suspect]
     Active Substance: TOPIRAMATE
     Indication: MIGRAINE PROPHYLAXIS
     Route: 048
     Dates: start: 20170613, end: 20180128
  4. MINIRINMELT [Concomitant]
     Active Substance: DESMOPRESSIN ACETATE
     Route: 048
  5. PRIMPERAN [Concomitant]
     Active Substance: METOCLOPRAMIDE HYDROCHLORIDE
     Dosage: AS NECESSARY.
     Route: 048
     Dates: start: 20170613
  6. LAMICTAL [Concomitant]
     Active Substance: LAMOTRIGINE
     Route: 048
  7. LEVOTHYROX [Concomitant]
     Active Substance: LEVOTHYROXINE
     Route: 048
  8. HYDROCORTISONE. [Concomitant]
     Active Substance: HYDROCORTISONE
     Route: 048
  9. UMATROPE [Concomitant]
     Active Substance: SOMATROPIN
     Route: 058
  10. LUTENYL [Concomitant]
     Active Substance: NOMEGESTROL ACETATE
     Route: 048
  11. ZOLMITRIPTAN. [Concomitant]
     Active Substance: ZOLMITRIPTAN
     Dosage: AS NECESSARY
     Route: 048
     Dates: start: 20170613
  12. METHYLPHENIDATE HYDROCHLORIDE. [Concomitant]
     Active Substance: METHYLPHENIDATE HYDROCHLORIDE
     Route: 048
  13. ANTADYS [Concomitant]
     Active Substance: FLURBIPROFEN
     Route: 048
     Dates: start: 20170613

REACTIONS (1)
  - Pancytopenia [Recovering/Resolving]

NARRATIVE: CASE EVENT DATE: 20180112
